FAERS Safety Report 9868212 (Version 1)
Quarter: 2014Q1

REPORT INFORMATION
  Report Type: Spontaneous
  Country: US (occurrence: US)
  Receive Date: 20140204
  Receipt Date: 20140204
  Transmission Date: 20141002
  Serious: No
  Sender: FDA-Public Use
  Company Number: PHEH2014US002313

PATIENT
  Sex: Male

DRUGS (2)
  1. TASIGNA [Suspect]
     Dosage: 150 MG
  2. LEVOTHYROXINE [Concomitant]
     Dosage: UNK UKN, UNK

REACTIONS (2)
  - Rhinorrhoea [Unknown]
  - Nasopharyngitis [Unknown]
